FAERS Safety Report 7780257-X (Version None)
Quarter: 2011Q3

REPORT INFORMATION
  Report Type: 
  Country: None (occurrence: None)
  Receive Date: 20110927
  Receipt Date: 20110916
  Transmission Date: 20111222
  Serious: Yes (Hospitalization)
  Sender: FDA-Public Use
  Company Number: US-ACTELION-A-NJ2011-54247

PATIENT

DRUGS (3)
  1. TRACLEER [Suspect]
     Indication: PULMONARY ARTERIAL HYPERTENSION
     Dosage: UNK
     Route: 048
     Dates: start: 20090126
  2. COUMADIN [Concomitant]
  3. OXYGEN [Concomitant]

REACTIONS (6)
  - CYANOSIS [None]
  - HAEMORRHAGE [None]
  - SYNCOPE [None]
  - FATIGUE [None]
  - HEAD INJURY [None]
  - HYPOGLYCAEMIA [None]
